FAERS Safety Report 16587932 (Version 10)
Quarter: 2019Q4

REPORT INFORMATION
  Report Type: Report from Study
  Country: FR (occurrence: FR)
  Receive Date: 20190717
  Receipt Date: 20191108
  Transmission Date: 20200122
  Serious: Yes (Death, Life-Threatening, Hospitalization)
  Sender: FDA-Public Use
  Company Number: FR-B.I. PHARMACEUTICALS,INC./RIDGEFIELD-2019-BI-029784

PATIENT
  Age: 50 Year
  Sex: Female
  Weight: 59 kg

DRUGS (3)
  1. NINTEDANIB [Suspect]
     Active Substance: NINTEDANIB
     Indication: MALIGNANT NEOPLASM OF THYMUS
     Route: 048
     Dates: start: 20190626, end: 20190709
  2. PEMBROLIZUMAB. [Suspect]
     Active Substance: PEMBROLIZUMAB
     Indication: SQUAMOUS CELL CARCINOMA
     Route: 042
     Dates: start: 20190703, end: 20190703
  3. REISHI [Concomitant]
     Active Substance: REISHI
     Indication: PRODUCT USED FOR UNKNOWN INDICATION
     Dosage: TAKEN FOR ABOUT 3 MOS
     Route: 065

REACTIONS (5)
  - Colitis [Fatal]
  - Stevens-Johnson syndrome [Fatal]
  - Bone marrow failure [Fatal]
  - Septic shock [Fatal]
  - Hepatocellular injury [Fatal]

NARRATIVE: CASE EVENT DATE: 20190708
